FAERS Safety Report 4696343-7 (Version None)
Quarter: 2005Q2

REPORT INFORMATION
  Report Type: 
  Country: None (occurrence: None)
  Receive Date: 20050621
  Receipt Date: 20050215
  Transmission Date: 20051028
  Serious: Yes (Death, Hospitalization, Other)
  Sender: FDA-Public Use
  Company Number: FRWYE433417FEB05

PATIENT
  Age: 73 Year
  Sex: Male

DRUGS (2)
  1. ENBREL [Suspect]
     Indication: RHEUMATOID ARTHRITIS
     Dosage: UNKNOWN
     Route: 058
     Dates: start: 20040801, end: 20050105
  2. METHOTREXATE [Suspect]
     Indication: RHEUMATOID ARTHRITIS
     Route: 048
     Dates: start: 20040801, end: 20050105

REACTIONS (11)
  - ACUTE RESPIRATORY DISTRESS SYNDROME [None]
  - CERVICAL GLAND TUBERCULOSIS [None]
  - LEUKOCYTOSIS [None]
  - LYMPHADENITIS [None]
  - MEDIASTINAL INFECTION [None]
  - MEDIASTINITIS [None]
  - SEPTIC SHOCK [None]
  - SYNOVITIS [None]
  - SYSTEMIC CANDIDA [None]
  - TUBERCULOSIS [None]
  - VITAL FUNCTIONS ABNORMAL [None]
